FAERS Safety Report 5631209-7 (Version None)
Quarter: 2008Q1

REPORT INFORMATION
  Report Type: 
  Country: None (occurrence: None)
  Receive Date: 20080131
  Receipt Date: 20071024
  Transmission Date: 20080703
  Serious: No
  Sender: FDA-Public Use
  Company Number: 163-21880-07101476

PATIENT
  Age: 75 Year
  Sex: Male
  Weight: 92.5338 kg

DRUGS (19)
  1. REVLIMID [Suspect]
     Indication: MULTIPLE MYELOMA
     Dosage: 2.5 MG, 1 IN 2 D, ORAL; 25 MG 1 IN 1 D ORAL; 15 MG DAILY X 21 DAYS ORAL
     Route: 048
     Dates: start: 20070625, end: 20070701
  2. REVLIMID [Suspect]
     Indication: MULTIPLE MYELOMA
     Dosage: 2.5 MG, 1 IN 2 D, ORAL; 25 MG 1 IN 1 D ORAL; 15 MG DAILY X 21 DAYS ORAL
     Route: 048
     Dates: start: 20070716, end: 20071001
  3. REVLIMID [Suspect]
     Indication: MULTIPLE MYELOMA
     Dosage: 2.5 MG, 1 IN 2 D, ORAL; 25 MG 1 IN 1 D ORAL; 15 MG DAILY X 21 DAYS ORAL
     Route: 048
     Dates: start: 20071025
  4. VELCADE [Concomitant]
  5. LEVOTHYROXINE SODIUM [Concomitant]
  6. LOPRESSOR [Concomitant]
  7. LYRICA [Concomitant]
  8. NEXIUM [Concomitant]
  9. ACYCLOVIR [Concomitant]
  10. BACTRIM [Concomitant]
  11. FIBER CAP (POLYCARBOPHIL CALCIUM) [Concomitant]
  12. MULTIVITAMIN [Concomitant]
  13. LOVASTATIN [Concomitant]
  14. CELEXA [Concomitant]
  15. OXYCODONE HCL [Concomitant]
  16. DECADRON [Concomitant]
  17. XOPENEX [Concomitant]
  18. NEPHROCAP (NEPHROCAPS) [Concomitant]
  19. ALLOPURINOL [Concomitant]

REACTIONS (1)
  - ANURIA [None]
